FAERS Safety Report 18709435 (Version 1)
Quarter: 2021Q1

REPORT INFORMATION
  Report Type: Report from Study
  Country: IT (occurrence: IT)
  Receive Date: 20210106
  Receipt Date: 20210106
  Transmission Date: 20210419
  Serious: Yes (Hospitalization)
  Sender: FDA-Public Use
  Company Number: IT-TEVA-2020-IT-1865467

PATIENT
  Age: 88 Year
  Sex: Male
  Weight: 70 kg

DRUGS (6)
  1. DILZENE 60 MG COMPRESSE A RILASCIO MODIFICATO [Concomitant]
     Active Substance: DILTIAZEM HYDROCHLORIDE
     Dosage: UNIT DOSE : 60 MG
     Route: 048
  2. PREDNISONE. [Concomitant]
     Active Substance: PREDNISONE
     Dosage: UNIT DOSE : 5 MG
     Route: 048
  3. ELIQUIS [Interacting]
     Active Substance: APIXABAN
     Indication: PULMONARY EMBOLISM
     Dosage: UNIT DOSE : 10 MG
     Route: 048
     Dates: start: 20180710
  4. FUROSEMIDE. [Concomitant]
     Active Substance: FUROSEMIDE
     Dosage: UNIT DOSE : 25 MG
     Route: 048
  5. ALLOPURINOL. [Concomitant]
     Active Substance: ALLOPURINOL
     Indication: GOUT
     Dosage: UNIT DOSE : 100 MG
     Route: 048
  6. CLOPIDOGREL [Suspect]
     Active Substance: CLOPIDOGREL BISULFATE
     Indication: PERIPHERAL ARTERIAL OCCLUSIVE DISEASE
     Dosage: UNIT DOSE : 75 MG
     Route: 048
     Dates: start: 20200112

REACTIONS (3)
  - Drug interaction [Not Recovered/Not Resolved]
  - Haemoptysis [Not Recovered/Not Resolved]
  - Rectal haemorrhage [Not Recovered/Not Resolved]

NARRATIVE: CASE EVENT DATE: 20201207
